FAERS Safety Report 4818322-9 (Version None)
Quarter: 2005Q3

REPORT INFORMATION
  Report Type: 
  Country: None (occurrence: None)
  Receive Date: 20050929
  Receipt Date: 20050706
  Transmission Date: 20060218
  Serious: No
  Sender: FDA-Public Use
  Company Number: 05P-163-0304909-00

PATIENT
  Age: 59 Year
  Sex: Female
  Weight: 78.9259 kg

DRUGS (5)
  1. HUMIRA [Suspect]
     Indication: RHEUMATOID ARTHRITIS
     Dosage: 40 MG, 1 IN  2 WK, SUBCUTANEOUS
     Route: 058
     Dates: start: 20040101
  2. SULFASALAZINE [Concomitant]
  3. HYDROXYCHLOROQUINE PHOSPHATE [Concomitant]
  4. ROSIGLITAZONE MALEATE [Concomitant]
  5. ATENOLOL [Concomitant]

REACTIONS (2)
  - ABDOMINAL DISTENSION [None]
  - WEIGHT INCREASED [None]
